FAERS Safety Report 9885346 (Version 3)
Quarter: 2014Q1

REPORT INFORMATION
  Report Type: Report from Study
  Country: CZ (occurrence: CZ)
  Receive Date: 20140210
  Receipt Date: 20140225
  Transmission Date: 20141002
  Serious: Yes (Hospitalization, Other)
  Sender: FDA-Public Use
  Company Number: CZ-PFIZER INC-2013345332

PATIENT
  Sex: Male

DRUGS (1)
  1. SUTENT [Suspect]
     Indication: RENAL CELL CARCINOMA
     Dosage: 50 MG, DAILY 4 WEEKS ON/2 WEEKS OFF
     Route: 048
     Dates: start: 20130918, end: 20131122

REACTIONS (24)
  - Diarrhoea [Recovered/Resolved]
  - Food intolerance [Unknown]
  - Nausea [Unknown]
  - Weight decreased [Recovering/Resolving]
  - Fatigue [Not Recovered/Not Resolved]
  - Dizziness [Unknown]
  - Decreased appetite [Recovered/Resolved]
  - Erosive duodenitis [Unknown]
  - Renal failure [Unknown]
  - Leukopenia [Unknown]
  - Pyrexia [Unknown]
  - Enteritis [Unknown]
  - Arteriosclerosis [Unknown]
  - Aortic calcification [Unknown]
  - Oesophageal hypomotility [Unknown]
  - Gastric hypomotility [Unknown]
  - Gastrooesophageal sphincter insufficiency [Unknown]
  - Hiatus hernia [Unknown]
  - Hypertension [Recovered/Resolved]
  - Jaundice [Unknown]
  - Dehydration [Unknown]
  - C-reactive protein increased [Unknown]
  - Anaemia [Unknown]
  - Hypocalcaemia [Unknown]
